APPROVED DRUG PRODUCT: FLUCONAZOLE IN SODIUM CHLORIDE 0.9% IN PLASTIC CONTAINER
Active Ingredient: FLUCONAZOLE
Strength: 400MG/200ML (2MG/ML)
Dosage Form/Route: INJECTABLE;INJECTION
Application: A076617 | Product #002
Applicant: HOSPIRA INC
Approved: Jul 29, 2004 | RLD: No | RS: No | Type: DISCN